FAERS Safety Report 16379647 (Version 1)
Quarter: 2019Q2

REPORT INFORMATION
  Report Type: Spontaneous
  Country: GR (occurrence: GR)
  Receive Date: 20190531
  Receipt Date: 20190531
  Transmission Date: 20190711
  Serious: Yes (Other)
  Sender: FDA-Public Use
  Company Number: GR-ELI_LILLY_AND_COMPANY-GR201905014886

PATIENT
  Age: 58 Year
  Sex: Female

DRUGS (2)
  1. ABRAXANE [Suspect]
     Active Substance: PACLITAXEL
     Indication: PANCREATIC CARCINOMA
     Dosage: 375 MG/M2, EVERY 28 DAYS
     Route: 041
     Dates: start: 201810
  2. GEMCITABINE HYDROCHLORIDE. [Suspect]
     Active Substance: GEMCITABINE HYDROCHLORIDE
     Indication: PANCREATIC CARCINOMA
     Dosage: 3000 MG/M2, EVERY 28 DAYS
     Route: 041
     Dates: start: 201810

REACTIONS (7)
  - Carcinoembryonic antigen increased [Recovering/Resolving]
  - Neutropenia [Unknown]
  - Off label use [Unknown]
  - Pulmonary embolism [Unknown]
  - Malaise [Unknown]
  - Carbohydrate antigen 19-9 increased [Recovering/Resolving]
  - Hypoaesthesia [Recovered/Resolved]
